FAERS Safety Report 5874062-9 (Version None)
Quarter: 2008Q3

REPORT INFORMATION
  Report Type: 
  Country: None (occurrence: None)
  Receive Date: 20080908
  Receipt Date: 20080828
  Transmission Date: 20090109
  Serious: Yes (Hospitalization, Other)
  Sender: FDA-Public Use
  Company Number: US-AVENTIS-200718318US

PATIENT
  Sex: Male
  Weight: 114 kg

DRUGS (1)
  1. KETEK [Suspect]
     Indication: BRONCHITIS
     Dosage: DOSE: UNK
     Dates: start: 20051220

REACTIONS (18)
  - ABDOMINAL PAIN [None]
  - ASTHENIA [None]
  - CHILLS [None]
  - CHOLECYSTITIS CHRONIC [None]
  - CHOLELITHIASIS [None]
  - CHROMATURIA [None]
  - CONSTIPATION [None]
  - DYSPNOEA [None]
  - HEPATIC ENZYME INCREASED [None]
  - HEPATIC NEOPLASM [None]
  - HEPATIC STEATOSIS [None]
  - HYPOPHAGIA [None]
  - NAUSEA [None]
  - PYREXIA [None]
  - RENAL CYST [None]
  - RETCHING [None]
  - VOMITING [None]
  - WEIGHT DECREASED [None]
